FAERS Safety Report 9989292 (Version 1)
Quarter: 2014Q1

REPORT INFORMATION
  Report Type: Not Available
  Country: FR (occurrence: FR)
  Receive Date: 20140310
  Receipt Date: 20140310
  Transmission Date: 20141002
  Serious: Yes (Hospitalization)
  Sender: FDA-Public Use
  Company Number: FR-ASTELLAS-2014EU001874

PATIENT
  Age: 66 Year
  Sex: Female

DRUGS (15)
  1. ADVAGRAF [Suspect]
     Indication: PROPHYLAXIS
     Dosage: 5 MG, UID/QD
     Route: 048
  2. ROVALCYTE [Suspect]
     Indication: CYTOMEGALOVIRUS INFECTION
     Dosage: 1 DF, OTHER
     Route: 048
  3. CELLCEPT /01275102/ [Suspect]
     Indication: PROPHYLAXIS
     Dosage: 1000 MG, UNKNOWN/D
     Route: 048
  4. SODIUM BICARBONATE [Concomitant]
     Dosage: 2 G, UNKNOWN/D
     Route: 048
  5. HUMALOG [Concomitant]
     Indication: TYPE 2 DIABETES MELLITUS
     Dosage: 40 IU, UNKNOWN/D
     Route: 058
  6. LANTUS [Concomitant]
     Indication: TYPE 2 DIABETES MELLITUS
     Dosage: 10 IU, UNKNOWN/D
     Route: 058
  7. PREVISCAN                          /00261401/ [Concomitant]
     Indication: ATRIAL FIBRILLATION
     Dosage: 25 MG, UNKNOWN/D
     Route: 048
  8. SOLUPRED                           /00016201/ [Concomitant]
     Indication: PROPHYLAXIS
     Dosage: 7.5 MG, UNKNOWN/D
     Route: 048
     Dates: start: 20131125, end: 20131216
  9. LEXOMIL [Concomitant]
     Indication: INSOMNIA
     Dosage: 0.25 MG, UNKNOWN/D
     Route: 048
  10. CORDARONE [Concomitant]
     Indication: ATRIAL FIBRILLATION
     Dosage: 200 MG, UNKNOWN/D
     Route: 048
  11. CARDENSIEL [Concomitant]
     Indication: ATRIAL FIBRILLATION
     Dosage: 2.5 MG, UNKNOWN/D
     Route: 048
  12. INEXIUM                            /01479303/ [Concomitant]
     Dosage: 40 MG, UNKNOWN/D
     Route: 048
  13. CALCIDIA [Concomitant]
     Dosage: 2 DF, UNKNOWN/D
     Route: 048
     Dates: start: 20131210
  14. CLAMOXYL (AMOXICILLIN) [Concomitant]
     Dosage: 1 G, OTHER
     Route: 048
     Dates: start: 20131210, end: 20131223
  15. ATHYMIL [Concomitant]
     Dosage: 10 MG, UID/QD
     Route: 048
     Dates: start: 20131210

REACTIONS (3)
  - Leukopenia [Not Recovered/Not Resolved]
  - Lymphopenia [Not Recovered/Not Resolved]
  - Neutropenia [Not Recovered/Not Resolved]
